FAERS Safety Report 7910426-7 (Version None)
Quarter: 2011Q4

REPORT INFORMATION
  Report Type: 
  Country: None (occurrence: None)
  Receive Date: 20111111
  Receipt Date: 20111102
  Transmission Date: 20120403
  Serious: Yes (Hospitalization)
  Sender: FDA-Public Use
  Company Number: DE-ROCHE-774098

PATIENT
  Sex: Female
  Weight: 75 kg

DRUGS (3)
  1. XELODA [Suspect]
     Indication: RECTAL CANCER
     Dosage: LAST DOSE PRIOR TO SAE:28/OCT/2011. SCHEDULE: 1000 MG/M2 PO BID D1-D15 OF 3 WEEK CYCLE.
     Route: 048
  2. METOPROLOL [Concomitant]
     Indication: HYPERTENSION
     Route: 048
  3. OXALIPLATIN [Suspect]
     Indication: RECTAL CANCER
     Dosage: LAST DOSE PRIOR TO SAE:21 APRIL 2011.SCHEDULE:50MG/M2 IV ON D1,8,15,22 AND 29
     Route: 042

REACTIONS (17)
  - HAEMOGLOBIN DECREASED [None]
  - RED BLOOD CELL COUNT DECREASED [None]
  - DEHYDRATION [None]
  - ILEAL PERFORATION [None]
  - DEVICE RELATED INFECTION [None]
  - STAPHYLOCOCCAL INFECTION [None]
  - BLOOD GLUCOSE INCREASED [None]
  - COLITIS [None]
  - PNEUMONIA [None]
  - HAEMATOCRIT DECREASED [None]
  - PLATELET COUNT DECREASED [None]
  - MONOCYTE COUNT INCREASED [None]
  - VOMITING [None]
  - LYMPHOCYTE PERCENTAGE DECREASED [None]
  - DIARRHOEA [None]
  - ABDOMINAL WALL ABSCESS [None]
  - WHITE BLOOD CELL COUNT DECREASED [None]
